FAERS Safety Report 5897269-3 (Version None)
Quarter: 2008Q3

REPORT INFORMATION
  Report Type: 
  Country: None (occurrence: None)
  Receive Date: 20080923
  Receipt Date: 20080908
  Transmission Date: 20090109
  Serious: Yes (Life-Threatening, Hospitalization)
  Sender: FDA-Public Use
  Company Number: 2008S1016289

PATIENT
  Age: 87 Year
  Sex: Female
  Weight: 53 kg

DRUGS (6)
  1. WARFARIN SODIUM [Suspect]
     Indication: ATRIAL FIBRILLATION
  2. FUROSEMIDE [Suspect]
     Dosage: 25 MG;DAILY;  25 MG;3 TIMES A DAY
  3. PERINDOPRIL ERBUMINE [Suspect]
     Indication: ANGIOTENSIN CONVERTING ENZYME
     Dosage: 2 MG; DAILY
  4. SPIRONOLACTONE [Suspect]
     Dosage: 25 MG; DAILY
  5. DIGOXIN [Suspect]
     Indication: ATRIAL FIBRILLATION
     Dosage: 0.125 MG
  6. THIAMAZOL (THIAMAZOLE) [Suspect]
     Indication: HYPERTHYROIDISM
     Dosage: 5 MG;DAILY

REACTIONS (37)
  - ACTIVITIES OF DAILY LIVING IMPAIRED [None]
  - ASTHENIA [None]
  - ATRIAL FIBRILLATION [None]
  - BRADYARRHYTHMIA [None]
  - BRADYCARDIA [None]
  - CARBOHYDRATE ANTIGEN 125 INCREASED [None]
  - CATARACT [None]
  - CEREBRAL ISCHAEMIA [None]
  - CEREBROVASCULAR DISORDER [None]
  - CHOLECYSTECTOMY [None]
  - CHOLESTASIS [None]
  - COGNITIVE DISORDER [None]
  - CONTUSION [None]
  - DECREASED APPETITE [None]
  - DELIRIUM [None]
  - DRUG INTERACTION [None]
  - DRUG LEVEL INCREASED [None]
  - FALL [None]
  - FIBRIN D DIMER INCREASED [None]
  - GASTRIC ULCER [None]
  - HAEMATEMESIS [None]
  - HAEMATURIA [None]
  - HEPATOMEGALY [None]
  - HYPERKALAEMIA [None]
  - HYPOCHROMIC ANAEMIA [None]
  - HYPOPHAGIA [None]
  - HYPOTENSION [None]
  - INTERNATIONAL NORMALISED RATIO INCREASED [None]
  - JAUNDICE [None]
  - LACUNAR INFARCTION [None]
  - LEUKOCYTOSIS [None]
  - MELAENA [None]
  - MOBILITY DECREASED [None]
  - REFUSAL OF TREATMENT BY RELATIVE [None]
  - RENAL IMPAIRMENT [None]
  - RESPIRATORY RATE INCREASED [None]
  - URINARY INCONTINENCE [None]
